FAERS Safety Report 6271788-2 (Version None)
Quarter: 2009Q3

REPORT INFORMATION
  Report Type: 
  Country: None (occurrence: None)
  Receive Date: 20090717
  Receipt Date: 20090713
  Transmission Date: 20100115
  Serious: Yes (Death, Hospitalization, Other)
  Sender: FDA-Public Use
  Company Number: US-CELGENEUS-163-21880-07020969

PATIENT
  Sex: Male

DRUGS (1)
  1. REVLIMID [Suspect]
     Route: 048
     Dates: start: 20070116, end: 20070303

REACTIONS (4)
  - EPISTAXIS [None]
  - NEOPLASM PROGRESSION [None]
  - PNEUMONIA [None]
  - RENAL IMPAIRMENT [None]
